FAERS Safety Report 19229939 (Version 5)
Quarter: 2021Q3

REPORT INFORMATION
  Report Type: Spontaneous
  Country: CA (occurrence: CA)
  Receive Date: 20210507
  Receipt Date: 20210902
  Transmission Date: 20211014
  Serious: Yes (Other)
  Sender: FDA-Public Use
  Company Number: CA-CELLTRION INC.-2020CA029270

PATIENT

DRUGS (11)
  1. INFLECTRA [Suspect]
     Active Substance: INFLIXIMAB-DYYB
     Dosage: 460 MG Q (EVERY) 0, 2, 6 WEEKS, THEN EVERY 8 WEEKS INDUCTION WEEK 0
     Route: 042
     Dates: start: 20201023, end: 20201023
  2. INFLECTRA [Suspect]
     Active Substance: INFLIXIMAB-DYYB
     Dosage: 460 MG EVERY 8 WEEKS
     Route: 042
     Dates: start: 20210312
  3. INFLECTRA [Suspect]
     Active Substance: INFLIXIMAB-DYYB
     Dosage: 460 MG Q (EVERY) 0, 2, 6 WEEKS, THEN EVERY 8 WEEKS
     Route: 042
     Dates: start: 20201120
  4. INFLECTRA [Suspect]
     Active Substance: INFLIXIMAB-DYYB
     Dosage: 500 MG EVERY 6 WEEKS
     Route: 042
     Dates: start: 20210423, end: 20210716
  5. INFLECTRA [Suspect]
     Active Substance: INFLIXIMAB-DYYB
     Dosage: 460 MG, Q (EVERY) 0, 2, 6 WEEKS, THEN EVERY 8 WEEKS INDUCTION WEEK 6
     Route: 042
     Dates: start: 20201120, end: 20201120
  6. INFLECTRA [Suspect]
     Active Substance: INFLIXIMAB-DYYB
     Dosage: 460 MG EVERY 8 WEEKS
     Route: 042
     Dates: start: 20210115, end: 20210312
  7. INFLECTRA [Suspect]
     Active Substance: INFLIXIMAB-DYYB
     Dosage: 460 MG EVERY 8 WEEKS
     Route: 042
     Dates: start: 20210423
  8. INFLECTRA [Suspect]
     Active Substance: INFLIXIMAB-DYYB
     Dosage: 500 MG EVERY 6 WEEKS
     Route: 042
     Dates: start: 20210716
  9. TYLENOL [Concomitant]
     Active Substance: ACETAMINOPHEN
     Indication: PREMEDICATION
     Dosage: UNK
     Dates: start: 20210423, end: 20210423
  10. INFLECTRA [Suspect]
     Active Substance: INFLIXIMAB-DYYB
     Dosage: 500 MG EVERY 6 WEEKS
     Route: 042
     Dates: start: 20210604
  11. INFLECTRA [Suspect]
     Active Substance: INFLIXIMAB-DYYB
     Indication: ANKYLOSING SPONDYLITIS
     Dosage: 460 MG Q (EVERY) 0, 2, 6 WEEKS, THEN EVERY 8 WEEKS INDUCTION WEEK 0
     Route: 042
     Dates: start: 20201008, end: 20201008

REACTIONS (12)
  - Feeling abnormal [Recovering/Resolving]
  - Sinus headache [Unknown]
  - Back pain [Unknown]
  - Injection site pain [Recovering/Resolving]
  - Injection site hypoaesthesia [Recovering/Resolving]
  - Sinus congestion [Unknown]
  - Neck pain [Unknown]
  - Headache [Recovering/Resolving]
  - Photosensitivity reaction [Recovering/Resolving]
  - Musculoskeletal stiffness [Not Recovered/Not Resolved]
  - Loss of personal independence in daily activities [Recovering/Resolving]
  - Spinal pain [Not Recovered/Not Resolved]

NARRATIVE: CASE EVENT DATE: 20201008
